FAERS Safety Report 21724526 (Version 2)
Quarter: 2022Q4

REPORT INFORMATION
  Report Type: Spontaneous
  Country: US (occurrence: US)
  Receive Date: 20221213
  Receipt Date: 20221213
  Transmission Date: 20230113
  Serious: No
  Sender: FDA-Public Use
  Company Number: US-Dermavant-000192

PATIENT
  Age: 56 Year
  Sex: Female

DRUGS (1)
  1. TAPINAROF [Suspect]
     Active Substance: TAPINAROF
     Indication: Psoriasis
     Dosage: PATIENT USED VTAMA 1% APPLIED ONCE DAILY BEHIND THE EARS, ABDOMINAL FOLD, AND UNDER BREASTS.
     Route: 061
     Dates: start: 20220823, end: 20220917

REACTIONS (3)
  - Dermatitis contact [Not Recovered/Not Resolved]
  - Pruritus [Not Recovered/Not Resolved]
  - Inflammation [Not Recovered/Not Resolved]
